FAERS Safety Report 13073585 (Version 6)
Quarter: 2019Q1

REPORT INFORMATION
  Report Type: Report from Study
  Country: JP (occurrence: JP)
  Receive Date: 20161229
  Receipt Date: 20190118
  Transmission Date: 20190417
  Serious: Yes (Hospitalization, Other)
  Sender: FDA-Public Use
  Company Number: PHJP2009JP008661

PATIENT
  Age: 50 Year
  Sex: Male
  Weight: 56 kg

DRUGS (86)
  1. CERTICAN [Suspect]
     Active Substance: EVEROLIMUS
     Dosage: 1.25 MG, UNK
     Route: 048
     Dates: start: 20080926, end: 20081207
  2. CERTICAN [Suspect]
     Active Substance: EVEROLIMUS
     Dosage: 3 MG, UNK
     Route: 048
     Dates: start: 20081226, end: 20090108
  3. CERTICAN [Suspect]
     Active Substance: EVEROLIMUS
     Dosage: 3.75 MG, UNK
     Route: 048
     Dates: start: 20090806, end: 20091218
  4. CERTICAN [Suspect]
     Active Substance: EVEROLIMUS
     Dosage: 4.5 MG, UNK
     Route: 048
     Dates: start: 20100828, end: 20101104
  5. CERTICAN [Suspect]
     Active Substance: EVEROLIMUS
     Dosage: 4 MG, UNK
     Route: 048
     Dates: start: 20111207, end: 20111222
  6. CERTICAN [Suspect]
     Active Substance: EVEROLIMUS
     Dosage: 4 MG, UNK
     Route: 048
     Dates: start: 20141121, end: 20150422
  7. CERTICAN [Suspect]
     Active Substance: EVEROLIMUS
     Dosage: 4.25 MG, UNK
     Route: 048
     Dates: start: 20150423, end: 20150909
  8. NORVASC [Concomitant]
     Active Substance: AMLODIPINE BESYLATE
     Dosage: 5 MG, UNK
     Route: 048
     Dates: start: 20040302
  9. MINOMYCIN [Concomitant]
     Active Substance: MINOCYCLINE HYDROCHLORIDE
     Indication: PRODUCT USED FOR UNKNOWN INDICATION
     Dosage: 200 MG, UNK
     Route: 048
  10. CERTICAN [Suspect]
     Active Substance: EVEROLIMUS
     Dosage: 1.75 MG, UNK
     Route: 048
     Dates: start: 20080808, end: 20080829
  11. CERTICAN [Suspect]
     Active Substance: EVEROLIMUS
     Dosage: 0.5 MG, UNK
     Route: 048
     Dates: start: 20080923, end: 20080925
  12. CERTICAN [Suspect]
     Active Substance: EVEROLIMUS
     Dosage: 2 MG, UNK
     Route: 048
     Dates: start: 20081218, end: 20081224
  13. CERTICAN [Suspect]
     Active Substance: EVEROLIMUS
     Dosage: 4.5 MG, UNK
     Route: 048
     Dates: start: 20100611, end: 20100712
  14. CERTICAN [Suspect]
     Active Substance: EVEROLIMUS
     Dosage: 5 MG, UNK
     Route: 048
     Dates: start: 20121108, end: 20130110
  15. CERTICAN [Suspect]
     Active Substance: EVEROLIMUS
     Dosage: 4.75 MG, UNK
     Route: 048
     Dates: start: 20130111, end: 20130225
  16. CERTICAN [Suspect]
     Active Substance: EVEROLIMUS
     Dosage: 5.25 MG, UNK
     Route: 048
     Dates: start: 20130315, end: 20130508
  17. CERTICAN [Suspect]
     Active Substance: EVEROLIMUS
     Dosage: 3.5 MG, UNK
     Route: 048
     Dates: start: 20160528, end: 20160706
  18. NEORAL [Suspect]
     Active Substance: CYCLOSPORINE
     Dosage: 160 MG, UNK
     Route: 048
     Dates: start: 20080728, end: 20080728
  19. NEORAL [Suspect]
     Active Substance: CYCLOSPORINE
     Dosage: 150 MG, UNK
     Route: 048
     Dates: start: 20080809, end: 20080822
  20. PREDONINE [Suspect]
     Active Substance: PREDNISOLONE
     Indication: HEART TRANSPLANT
     Dosage: UNK
     Route: 048
     Dates: start: 200402
  21. PREDONINE [Suspect]
     Active Substance: PREDNISOLONE
     Dosage: 10 MG, UNK
     Route: 048
     Dates: start: 20081208, end: 20100518
  22. BAKTAR [Concomitant]
     Active Substance: SULFAMETHOXAZOLE\TRIMETHOPRIM
     Indication: ANTIFUNGAL PROPHYLAXIS
     Dosage: MONDAY, WEDNESDAY, FRIDAY
     Route: 048
  23. NORVASC [Concomitant]
     Active Substance: AMLODIPINE BESYLATE
     Indication: HYPERTENSION
     Dosage: 7.5 MG, UNK
     Route: 048
  24. LIVALO [Concomitant]
     Active Substance: PITAVASTATIN CALCIUM
     Indication: HYPERCHOLESTEROLAEMIA
     Dosage: 1 MG, UNK
     Route: 048
     Dates: start: 20090806, end: 20100609
  25. CALONAL [Concomitant]
     Active Substance: ACETAMINOPHEN
     Indication: PRODUCT USED FOR UNKNOWN INDICATION
     Dosage: 400 MG, UNK
     Route: 048
  26. CERTICAN [Suspect]
     Active Substance: EVEROLIMUS
     Dosage: 1.5 MG, UNK
     Route: 048
     Dates: start: 20081208, end: 20081217
  27. CERTICAN [Suspect]
     Active Substance: EVEROLIMUS
     Dosage: 2.5 MG, UNK
     Route: 048
     Dates: start: 20081225, end: 20081225
  28. CERTICAN [Suspect]
     Active Substance: EVEROLIMUS
     Dosage: 4 MG, UNK
     Route: 048
     Dates: start: 20100416, end: 20100610
  29. CERTICAN [Suspect]
     Active Substance: EVEROLIMUS
     Dosage: 4.5 MG, UNK
     Route: 048
     Dates: end: 20131115
  30. CERTICAN [Suspect]
     Active Substance: EVEROLIMUS
     Dosage: 4.25 MG, UNK
     Route: 048
     Dates: start: 20140404, end: 20141120
  31. CERTICAN [Suspect]
     Active Substance: EVEROLIMUS
     Dosage: 4 MG, UNK
     Route: 048
     Dates: start: 20150910, end: 20151104
  32. PREDONINE [Suspect]
     Active Substance: PREDNISOLONE
     Dosage: 110 MG, UNK
     Route: 048
     Dates: start: 20081028, end: 20081030
  33. PREDONINE [Suspect]
     Active Substance: PREDNISOLONE
     Dosage: 5 MG, UNK
     Route: 048
     Dates: start: 20110227, end: 20160126
  34. SALINE [Concomitant]
     Active Substance: SODIUM CHLORIDE
     Indication: PRODUCT USED FOR UNKNOWN INDICATION
     Dosage: UNK
     Route: 048
  35. CERTICAN [Suspect]
     Active Substance: EVEROLIMUS
     Dosage: 3.25 MG, UNK
     Route: 048
     Dates: start: 20090109, end: 20090730
  36. CERTICAN [Suspect]
     Active Substance: EVEROLIMUS
     Dosage: 3.5 MG, UNK
     Route: 048
     Dates: start: 20091219, end: 20100210
  37. CERTICAN [Suspect]
     Active Substance: EVEROLIMUS
     Dosage: 4.25 MG, UNK
     Route: 048
     Dates: start: 20111111, end: 20111206
  38. CERTICAN [Suspect]
     Active Substance: EVEROLIMUS
     Dosage: 4.5 MG, UNK
     Route: 048
     Dates: start: 20120720, end: 20120913
  39. CERTICAN [Suspect]
     Active Substance: EVEROLIMUS
     Dosage: 5 MG, UNK
     Route: 048
     Dates: start: 20130509, end: 20130711
  40. CERTICAN [Suspect]
     Active Substance: EVEROLIMUS
     Dosage: 4 MG, UNK
     Route: 048
     Dates: start: 20140318, end: 20140403
  41. CERTICAN [Suspect]
     Active Substance: EVEROLIMUS
     Dosage: 3.75 MG, UNK
     Route: 048
     Dates: start: 20151105, end: 20160106
  42. CERTICAN [Suspect]
     Active Substance: EVEROLIMUS
     Dosage: 3.5 MG, UNK
     Route: 048
     Dates: start: 20161117, end: 20170116
  43. CARBAMAZEPINE. [Suspect]
     Active Substance: CARBAMAZEPINE
     Indication: PRODUCT USED FOR UNKNOWN INDICATION
     Dosage: UNK
     Route: 048
  44. CELLCEPT [Suspect]
     Active Substance: MYCOPHENOLATE MOFETIL\MYCOPHENOLATE MOFETIL HYDROCHLORIDE
     Dosage: 1.25 G, UNK
     Route: 048
     Dates: start: 20080723, end: 20080723
  45. VALIXA [Suspect]
     Active Substance: VALGANCICLOVIR
     Dosage: 900 MG, QD
     Route: 048
     Dates: start: 20081208, end: 20081222
  46. RENIVACE [Concomitant]
     Active Substance: ENALAPRIL
     Indication: HYPERTENSION
     Dosage: 10 MG, UNK
     Route: 048
  47. SAWACILLIN [Concomitant]
     Active Substance: AMOXICILLIN
     Indication: PRODUCT USED FOR UNKNOWN INDICATION
     Dosage: 500 MG, UNK
     Route: 048
  48. CERTICAN [Suspect]
     Active Substance: EVEROLIMUS
     Dosage: 4.75 MG, UNK
     Route: 048
     Dates: start: 20101105, end: 20110329
  49. CERTICAN [Suspect]
     Active Substance: EVEROLIMUS
     Dosage: 4.5 MG, UNK
     Route: 048
     Dates: start: 20120214, end: 20120409
  50. CERTICAN [Suspect]
     Active Substance: EVEROLIMUS
     Dosage: 3.75 MG, UNK
     Route: 048
     Dates: start: 20160407, end: 20160527
  51. PREDONINE [Suspect]
     Active Substance: PREDNISOLONE
     Dosage: UNK
     Route: 048
     Dates: end: 200701
  52. ZETIA [Concomitant]
     Active Substance: EZETIMIBE
     Indication: HYPERCHOLESTEROLAEMIA
     Dosage: 10 MG, UNK
     Route: 048
     Dates: start: 20090123, end: 20101124
  53. ZETIA [Concomitant]
     Active Substance: EZETIMIBE
     Dosage: 10 MG, QD
     Route: 048
     Dates: start: 20130913
  54. CERTICAN [Suspect]
     Active Substance: EVEROLIMUS
     Dosage: 4.75 MG, UNK
     Route: 048
     Dates: start: 20120914, end: 20121108
  55. CERTICAN [Suspect]
     Active Substance: EVEROLIMUS
     Dosage: 4 MG, UNK
     Route: 048
     Dates: start: 20160107
  56. CERTICAN [Suspect]
     Active Substance: EVEROLIMUS
     Dosage: 4 MG, UNK
     Route: 048
     Dates: start: 20160310, end: 20160406
  57. CERTICAN [Suspect]
     Active Substance: EVEROLIMUS
     Dosage: 3.75 MG, UNK
     Route: 048
     Dates: start: 20160707, end: 20161116
  58. NEORAL [Suspect]
     Active Substance: CYCLOSPORINE
     Indication: HEART TRANSPLANT
     Dosage: 180 MG, QD
     Route: 048
     Dates: start: 20040207, end: 20080727
  59. NEORAL [Suspect]
     Active Substance: CYCLOSPORINE
     Dosage: 160 MG, UNK
     Route: 048
     Dates: start: 20080823, end: 20080902
  60. PREDONINE [Suspect]
     Active Substance: PREDNISOLONE
     Dosage: 7.5 MG, UNK
     Route: 048
     Dates: start: 20081031, end: 20081207
  61. PREDONINE [Suspect]
     Active Substance: PREDNISOLONE
     Dosage: 2.5 MG, UNK
     Route: 048
     Dates: start: 20160127
  62. CELLCEPT [Suspect]
     Active Substance: MYCOPHENOLATE MOFETIL\MYCOPHENOLATE MOFETIL HYDROCHLORIDE
     Indication: HEART TRANSPLANT
     Dosage: 1.25 G, QD
     Route: 048
     Dates: start: 20040209
  63. CERTICAN [Suspect]
     Active Substance: EVEROLIMUS
     Dosage: 3.75 MG, UNK
     Route: 048
     Dates: start: 20100211, end: 20100415
  64. CERTICAN [Suspect]
     Active Substance: EVEROLIMUS
     Dosage: 4.25 MG, UNK
     Route: 048
     Dates: start: 20100713, end: 20100827
  65. CERTICAN [Suspect]
     Active Substance: EVEROLIMUS
     Dosage: 4.5 MG, UNK
     Route: 048
     Dates: start: 20110330, end: 20111110
  66. CERTICAN [Suspect]
     Active Substance: EVEROLIMUS
     Dosage: 4.25 MG, UNK
     Route: 048
     Dates: start: 20111223, end: 20120213
  67. CERTICAN [Suspect]
     Active Substance: EVEROLIMUS
     Dosage: 4.25 MG, UNK
     Route: 048
     Dates: start: 20131116, end: 20140317
  68. CERTICAN [Suspect]
     Active Substance: EVEROLIMUS
     Dosage: 4.25 MG, UNK
     Route: 048
     Dates: end: 20160309
  69. NEORAL [Suspect]
     Active Substance: CYCLOSPORINE
     Dosage: 170 MG, UNK
     Route: 048
     Dates: start: 20080903, end: 20080911
  70. PREDONINE [Suspect]
     Active Substance: PREDNISOLONE
     Dosage: 30 MG, UNK
     Route: 048
     Dates: start: 20080826, end: 20081027
  71. VALIXA [Suspect]
     Active Substance: VALGANCICLOVIR
     Indication: INFECTION PROPHYLAXIS
     Dosage: 900 MG, QD
     Route: 048
     Dates: start: 20080530, end: 20080901
  72. NORVASC [Concomitant]
     Active Substance: AMLODIPINE BESYLATE
     Dosage: 2.5 MG, UNK
     Route: 048
     Dates: start: 20040227, end: 20040301
  73. TAMIFLU [Concomitant]
     Active Substance: OSELTAMIVIR PHOSPHATE
     Indication: ANTIVIRAL PROPHYLAXIS
     Dosage: 150 MG, UNK
     Route: 048
     Dates: start: 20091016, end: 20091020
  74. LIPOVAS [Concomitant]
     Active Substance: PRAVASTATIN SODIUM
     Indication: HYPERCHOLESTEROLAEMIA
     Dosage: 5 MG, UNK
     Route: 048
     Dates: start: 20100307, end: 20110517
  75. SINLESTAL [Concomitant]
     Indication: PRODUCT USED FOR UNKNOWN INDICATION
     Dosage: 500 MG, UNK
     Route: 048
     Dates: start: 20121108, end: 20130110
  76. CERTICAN [Suspect]
     Active Substance: EVEROLIMUS
     Indication: HEART TRANSPLANT
     Dosage: 1.5 MG, QD
     Route: 048
     Dates: start: 20080724, end: 20080807
  77. CERTICAN [Suspect]
     Active Substance: EVEROLIMUS
     Dosage: 3.5 MG, UNK
     Route: 048
     Dates: start: 20090731, end: 20090805
  78. CERTICAN [Suspect]
     Active Substance: EVEROLIMUS
     Dosage: 4.75 MG, UNK
     Route: 048
     Dates: start: 20120410, end: 20120719
  79. CERTICAN [Suspect]
     Active Substance: EVEROLIMUS
     Dosage: 5 MG, UNK
     Route: 048
     Dates: start: 20130226, end: 20130314
  80. CERTICAN [Suspect]
     Active Substance: EVEROLIMUS
     Dosage: 4.75 MG, UNK
     Route: 048
     Dates: start: 20130712
  81. CERTICAN [Suspect]
     Active Substance: EVEROLIMUS
     Dosage: 3.25 MG, UNK
     Route: 048
     Dates: start: 20170117
  82. NEORAL [Suspect]
     Active Substance: CYCLOSPORINE
     Dosage: 140 MG, UNK
     Route: 048
     Dates: start: 20080729, end: 20080806
  83. NEORAL [Suspect]
     Active Substance: CYCLOSPORINE
     Dosage: 160 MG, UNK
     Route: 048
     Dates: start: 20080912, end: 20081207
  84. PREDONINE [Suspect]
     Active Substance: PREDNISOLONE
     Dosage: 7.5 MG, UNK
     Route: 048
     Dates: start: 20100519, end: 20110226
  85. ZETIA [Concomitant]
     Active Substance: EZETIMIBE
     Dosage: 10 MG, UNK
     Route: 048
     Dates: start: 20110127, end: 20130711
  86. CRESTOR [Concomitant]
     Active Substance: ROSUVASTATIN CALCIUM
     Indication: HYPERCHOLESTEROLAEMIA
     Dosage: 2.5 MG, UNK
     Route: 048
     Dates: start: 20101125, end: 20101221

REACTIONS (32)
  - Dyspnoea exertional [Unknown]
  - Hypothyroidism [Not Recovered/Not Resolved]
  - Periorbital oedema [Recovering/Resolving]
  - Snake bite [Recovering/Resolving]
  - Feeling hot [Unknown]
  - Pain in extremity [Unknown]
  - Lymphoma [Unknown]
  - Brain natriuretic peptide decreased [Unknown]
  - Cytomegalovirus infection [Unknown]
  - Diabetes mellitus [Not Recovered/Not Resolved]
  - Blood cholesterol increased [Recovering/Resolving]
  - Stomatitis [Recovered/Resolved]
  - Upper respiratory tract inflammation [Recovered/Resolved]
  - Excessive granulation tissue [Unknown]
  - Diabetes mellitus [Recovering/Resolving]
  - Leukopenia [Unknown]
  - Interleukin-2 receptor increased [Recovered/Resolved]
  - Anaphylactic shock [Unknown]
  - Wound [Unknown]
  - Erythema [Unknown]
  - Immunosuppressant drug level decreased [Recovered/Resolved]
  - Heart transplant rejection [Unknown]
  - Endothelin abnormal [Unknown]
  - Epstein-Barr virus infection [Unknown]
  - Coronary artery disease [Unknown]
  - Influenza [Recovered/Resolved]
  - Peripheral swelling [Unknown]
  - Transplant rejection [Unknown]
  - Panel-reactive antibody increased [Unknown]
  - Malaise [Unknown]
  - Echocardiogram abnormal [Unknown]
  - Pulpitis dental [Recovered/Resolved]

NARRATIVE: CASE EVENT DATE: 20080725
